FAERS Safety Report 8558653-2 (Version None)
Quarter: 2012Q3

REPORT INFORMATION
  Report Type: 
  Country: None (occurrence: None)
  Receive Date: 20120801
  Receipt Date: 20120725
  Transmission Date: 20120928
  Serious: Yes (Death, Other)
  Sender: FDA-Public Use
  Company Number: US-PFIZER INC-2012118827

PATIENT
  Sex: Male
  Weight: 88.889 kg

DRUGS (9)
  1. PLAVIX [Concomitant]
  2. ASPIRIN [Concomitant]
  3. COREG [Concomitant]
  4. LASIX [Concomitant]
  5. REVATIO [Suspect]
     Indication: PULMONARY ARTERIAL HYPERTENSION
  6. DIGOXIN [Concomitant]
  7. REVATIO [Suspect]
     Indication: PULMONARY HYPERTENSION
     Dosage: 20 MG, 3X/DAY
     Route: 048
     Dates: start: 20100706
  8. COUMADIN [Concomitant]
  9. METOLAZONE [Concomitant]

REACTIONS (9)
  - VENOUS PRESSURE JUGULAR INCREASED [None]
  - ASCITES [None]
  - DYSPNOEA [None]
  - WEIGHT INCREASED [None]
  - ATRIAL FIBRILLATION [None]
  - CEREBRAL HAEMORRHAGE [None]
  - OEDEMA PERIPHERAL [None]
  - ABDOMINAL HERNIA [None]
  - WALKING DISABILITY [None]
